FAERS Safety Report 19153221 (Version 15)
Quarter: 2023Q1

REPORT INFORMATION
  Report Type: Report from Study
  Country: CN (occurrence: None)
  Receive Date: 20210419
  Receipt Date: 20230307
  Transmission Date: 20230417
  Serious: Yes (Hospitalization, Disabling)
  Sender: FDA-Public Use
  Company Number: CN-ROCHE-2809256

PATIENT
  Age: 71 Year
  Sex: Male
  Weight: 70 kg

DRUGS (92)
  1. ATEZOLIZUMAB [Suspect]
     Active Substance: ATEZOLIZUMAB
     Indication: Non-small cell lung cancer stage IV
     Dosage: START DATE OF MOST RECENT DOSE OF STUDY DRUG PRIOR TO AE: 29/JUL/2020?START DATE OF MOST RECENT DOSE
     Route: 041
     Dates: start: 20200708, end: 20210722
  2. BEVACIZUMAB [Suspect]
     Active Substance: BEVACIZUMAB
     Indication: Non-small cell lung cancer stage IV
     Dosage: DOSE LAST STUDY DRUG ADMIN PRIOR AE IS 1050 MG?START DATE OF MOST RECENT DOSE OF STUDY DRUG PRIOR TO
     Route: 042
     Dates: start: 20200708, end: 20210722
  3. CARBOPLATIN [Suspect]
     Active Substance: CARBOPLATIN
     Indication: Non-small cell lung cancer stage IV
     Dosage: DOSE LAST STUDY DRUG ADMIN PRIOR AE IS 558 MG?START DATE OF MOST RECENT DOSE OF STUDY DRUG PRIOR TO
     Route: 042
     Dates: start: 20200708, end: 20210722
  4. PEMETREXED [Suspect]
     Active Substance: PEMETREXED
     Indication: Non-small cell lung cancer stage IV
     Dosage: DOSE LAST STUDY DRUG ADMIN PRIOR AE IS 910 MG (29/JUL/2020) AND PRIOR SAE 920 MG (16/MAR/2021)
     Route: 042
     Dates: start: 20200708, end: 20210722
  5. IRBESARTAN AND HYDROCHLOROTHIAZIDE [Concomitant]
     Active Substance: HYDROCHLOROTHIAZIDE\IRBESARTAN
     Indication: Hypertension
     Dates: start: 2011, end: 20200820
  6. METOPROLOL SUCCINATE [Concomitant]
     Active Substance: METOPROLOL SUCCINATE
     Indication: Hypertension
     Dates: start: 2011
  7. FOLIC ACID [Concomitant]
     Active Substance: FOLIC ACID
     Dates: start: 20200701, end: 202106
  8. OMEPRAZOLE MAGNESIUM [Concomitant]
     Active Substance: OMEPRAZOLE MAGNESIUM
     Dates: start: 20200728, end: 20200729
  9. OMEPRAZOLE MAGNESIUM [Concomitant]
     Active Substance: OMEPRAZOLE MAGNESIUM
     Dates: start: 20200819, end: 20200819
  10. OMEPRAZOLE MAGNESIUM [Concomitant]
     Active Substance: OMEPRAZOLE MAGNESIUM
     Dates: start: 20200820, end: 20200826
  11. OMEPRAZOLE MAGNESIUM [Concomitant]
     Active Substance: OMEPRAZOLE MAGNESIUM
     Dates: start: 20200911, end: 20200917
  12. OMEPRAZOLE MAGNESIUM [Concomitant]
     Active Substance: OMEPRAZOLE MAGNESIUM
     Dates: start: 20201012, end: 20201012
  13. OMEPRAZOLE MAGNESIUM [Concomitant]
     Active Substance: OMEPRAZOLE MAGNESIUM
     Dates: start: 20200708, end: 20200715
  14. OMEPRAZOLE MAGNESIUM [Concomitant]
     Active Substance: OMEPRAZOLE MAGNESIUM
     Dates: start: 20200707, end: 20200707
  15. DEXAMETHASONE ACETATE [Concomitant]
     Active Substance: DEXAMETHASONE ACETATE
     Route: 048
     Dates: start: 20200729, end: 20200730
  16. DEXAMETHASONE ACETATE [Concomitant]
     Active Substance: DEXAMETHASONE ACETATE
     Route: 048
     Dates: start: 20200728, end: 20200728
  17. DEXAMETHASONE ACETATE [Concomitant]
     Active Substance: DEXAMETHASONE ACETATE
     Route: 048
     Dates: start: 20200819, end: 20200819
  18. DEXAMETHASONE ACETATE [Concomitant]
     Active Substance: DEXAMETHASONE ACETATE
     Route: 048
     Dates: start: 20200731, end: 20200731
  19. DEXAMETHASONE ACETATE [Concomitant]
     Active Substance: DEXAMETHASONE ACETATE
     Route: 048
     Dates: start: 20200820, end: 20200822
  20. DEXAMETHASONE ACETATE [Concomitant]
     Active Substance: DEXAMETHASONE ACETATE
     Route: 048
     Dates: start: 20200910, end: 20200911
  21. DEXAMETHASONE ACETATE [Concomitant]
     Active Substance: DEXAMETHASONE ACETATE
     Route: 048
     Dates: start: 20200912, end: 20200912
  22. DEXAMETHASONE ACETATE [Concomitant]
     Active Substance: DEXAMETHASONE ACETATE
     Route: 048
     Dates: start: 20201012, end: 20201012
  23. DEXAMETHASONE ACETATE [Concomitant]
     Active Substance: DEXAMETHASONE ACETATE
     Route: 048
     Dates: start: 20201013, end: 20201014
  24. DEXAMETHASONE ACETATE [Concomitant]
     Active Substance: DEXAMETHASONE ACETATE
     Route: 048
     Dates: start: 20210220, end: 20210220
  25. DEXAMETHASONE ACETATE [Concomitant]
     Active Substance: DEXAMETHASONE ACETATE
     Route: 048
     Dates: start: 20201124, end: 20201124
  26. DEXAMETHASONE ACETATE [Concomitant]
     Active Substance: DEXAMETHASONE ACETATE
     Route: 048
     Dates: start: 20201125, end: 20201126
  27. DEXAMETHASONE ACETATE [Concomitant]
     Active Substance: DEXAMETHASONE ACETATE
     Route: 048
     Dates: start: 20201216, end: 20201216
  28. DEXAMETHASONE ACETATE [Concomitant]
     Active Substance: DEXAMETHASONE ACETATE
     Route: 048
     Dates: start: 20201217, end: 20201217
  29. DEXAMETHASONE ACETATE [Concomitant]
     Active Substance: DEXAMETHASONE ACETATE
     Route: 048
     Dates: start: 20210106, end: 20210106
  30. DEXAMETHASONE ACETATE [Concomitant]
     Active Substance: DEXAMETHASONE ACETATE
     Route: 048
     Dates: start: 20210108, end: 20210108
  31. DEXAMETHASONE ACETATE [Concomitant]
     Active Substance: DEXAMETHASONE ACETATE
     Route: 048
     Dates: start: 20210109, end: 20210109
  32. DEXAMETHASONE ACETATE [Concomitant]
     Active Substance: DEXAMETHASONE ACETATE
     Route: 048
     Dates: start: 20210129, end: 20210130
  33. DEXAMETHASONE ACETATE [Concomitant]
     Active Substance: DEXAMETHASONE ACETATE
     Route: 048
     Dates: start: 20210219, end: 20210219
  34. DEXAMETHASONE ACETATE [Concomitant]
     Active Substance: DEXAMETHASONE ACETATE
     Route: 048
     Dates: start: 20210221, end: 20210222
  35. DEXAMETHASONE ACETATE [Concomitant]
     Active Substance: DEXAMETHASONE ACETATE
     Route: 048
     Dates: start: 20210315, end: 20210315
  36. DEXAMETHASONE ACETATE [Concomitant]
     Active Substance: DEXAMETHASONE ACETATE
     Route: 048
     Dates: start: 20210316, end: 20210317
  37. DEXAMETHASONE ACETATE [Concomitant]
     Active Substance: DEXAMETHASONE ACETATE
     Route: 048
     Dates: start: 20200708, end: 20200709
  38. DEXAMETHASONE ACETATE [Concomitant]
     Active Substance: DEXAMETHASONE ACETATE
     Route: 048
     Dates: start: 20200710, end: 20200710
  39. DEXAMETHASONE ACETATE [Concomitant]
     Active Substance: DEXAMETHASONE ACETATE
     Route: 048
     Dates: start: 20200707, end: 20200707
  40. LEUCOGEN [Concomitant]
     Active Substance: LEUCOGEN
     Dates: start: 20200730, end: 20200814
  41. LEUCOGEN [Concomitant]
     Active Substance: LEUCOGEN
     Dates: start: 20200821, end: 20200905
  42. LEUCOGEN [Concomitant]
     Active Substance: LEUCOGEN
     Dates: start: 20200911, end: 20200926
  43. LEUCOGEN [Concomitant]
     Active Substance: LEUCOGEN
     Dates: start: 20201105, end: 20201112
  44. LEUCOGEN [Concomitant]
     Active Substance: LEUCOGEN
     Dates: start: 20201125, end: 20201210
  45. LEUCOGEN [Concomitant]
     Active Substance: LEUCOGEN
     Dates: start: 20201218, end: 20210102
  46. LEUCOGEN [Concomitant]
     Active Substance: LEUCOGEN
     Dates: start: 20210108, end: 20210119
  47. LEUCOGEN [Concomitant]
     Active Substance: LEUCOGEN
     Dates: start: 20210129, end: 20210213
  48. LEUCOGEN [Concomitant]
     Active Substance: LEUCOGEN
     Dates: start: 20210221, end: 20210308
  49. LEUCOGEN [Concomitant]
     Active Substance: LEUCOGEN
     Dates: start: 20200709, end: 20200724
  50. ONDANSETRON HYDROCHLORIDE [Concomitant]
     Active Substance: ONDANSETRON HYDROCHLORIDE
     Dates: start: 20200730, end: 20200804
  51. ONDANSETRON HYDROCHLORIDE [Concomitant]
     Active Substance: ONDANSETRON HYDROCHLORIDE
     Dates: start: 20200821, end: 20200826
  52. ONDANSETRON HYDROCHLORIDE [Concomitant]
     Active Substance: ONDANSETRON HYDROCHLORIDE
     Dates: start: 20200911, end: 20200916
  53. ONDANSETRON HYDROCHLORIDE [Concomitant]
     Active Substance: ONDANSETRON HYDROCHLORIDE
     Dates: start: 20201105, end: 20201110
  54. ONDANSETRON HYDROCHLORIDE [Concomitant]
     Active Substance: ONDANSETRON HYDROCHLORIDE
     Dates: start: 20201126, end: 20201201
  55. ONDANSETRON HYDROCHLORIDE [Concomitant]
     Active Substance: ONDANSETRON HYDROCHLORIDE
     Dates: start: 20201218, end: 20201223
  56. ONDANSETRON HYDROCHLORIDE [Concomitant]
     Active Substance: ONDANSETRON HYDROCHLORIDE
     Dates: start: 20210129, end: 20210203
  57. ONDANSETRON HYDROCHLORIDE [Concomitant]
     Active Substance: ONDANSETRON HYDROCHLORIDE
     Dates: start: 20210221, end: 20210226
  58. ONDANSETRON HYDROCHLORIDE [Concomitant]
     Active Substance: ONDANSETRON HYDROCHLORIDE
     Dates: start: 20200709, end: 20200714
  59. LANSOPRAZOLE [Concomitant]
     Active Substance: LANSOPRAZOLE
     Dates: start: 20200729, end: 20200729
  60. LANSOPRAZOLE [Concomitant]
     Active Substance: LANSOPRAZOLE
     Dates: start: 20200820, end: 20200820
  61. LANSOPRAZOLE [Concomitant]
     Active Substance: LANSOPRAZOLE
     Dates: start: 20201013, end: 20201013
  62. LANSOPRAZOLE [Concomitant]
     Active Substance: LANSOPRAZOLE
     Dates: start: 20200910, end: 20200910
  63. LANSOPRAZOLE [Concomitant]
     Active Substance: LANSOPRAZOLE
     Dates: start: 20210316, end: 20210316
  64. LANSOPRAZOLE [Concomitant]
     Active Substance: LANSOPRAZOLE
     Dates: start: 20210220, end: 20210220
  65. LANSOPRAZOLE [Concomitant]
     Active Substance: LANSOPRAZOLE
     Dates: start: 20200708, end: 20200708
  66. TROPISETRON HYDROCHLORIDE [Concomitant]
     Active Substance: TROPISETRON HYDROCHLORIDE
     Dates: start: 20200729, end: 20200729
  67. TROPISETRON HYDROCHLORIDE [Concomitant]
     Active Substance: TROPISETRON HYDROCHLORIDE
     Dates: start: 20200820, end: 20200820
  68. TROPISETRON HYDROCHLORIDE [Concomitant]
     Active Substance: TROPISETRON HYDROCHLORIDE
     Dates: start: 20200910, end: 20200910
  69. TROPISETRON HYDROCHLORIDE [Concomitant]
     Active Substance: TROPISETRON HYDROCHLORIDE
     Dates: start: 20201013, end: 20201013
  70. TROPISETRON HYDROCHLORIDE [Concomitant]
     Active Substance: TROPISETRON HYDROCHLORIDE
     Dates: start: 20210316, end: 20210316
  71. VITAMIN B6 [Concomitant]
     Active Substance: PYRIDOXINE HYDROCHLORIDE
     Dates: start: 20200820, end: 20200820
  72. VITAMIN B6 [Concomitant]
     Active Substance: PYRIDOXINE HYDROCHLORIDE
     Dates: start: 20200729, end: 20200729
  73. VITAMIN B6 [Concomitant]
     Active Substance: PYRIDOXINE HYDROCHLORIDE
     Dates: start: 20200910, end: 20200910
  74. VITAMIN B6 [Concomitant]
     Active Substance: PYRIDOXINE HYDROCHLORIDE
     Dates: start: 20201013, end: 20201013
  75. VITAMIN B6 [Concomitant]
     Active Substance: PYRIDOXINE HYDROCHLORIDE
     Dates: start: 20210316, end: 20210316
  76. VITAMIN B6 [Concomitant]
     Active Substance: PYRIDOXINE HYDROCHLORIDE
     Dates: start: 20210225
  77. VITAMIN B6 [Concomitant]
     Active Substance: PYRIDOXINE HYDROCHLORIDE
     Dates: start: 20210128, end: 20210128
  78. VITAMIN B6 [Concomitant]
     Active Substance: PYRIDOXINE HYDROCHLORIDE
     Dates: start: 20210220, end: 20210220
  79. VITAMIN B6 [Concomitant]
     Active Substance: PYRIDOXINE HYDROCHLORIDE
     Dates: start: 20200708, end: 20200708
  80. DUPHALAC [Concomitant]
     Active Substance: LACTULOSE
     Indication: Constipation
     Dates: start: 20200910, end: 20200910
  81. METHYLCOBALAMIN [Concomitant]
     Active Substance: METHYLCOBALAMIN
     Dates: start: 20200911, end: 20200923
  82. METHYLCOBALAMIN [Concomitant]
     Active Substance: METHYLCOBALAMIN
     Dates: start: 20210225
  83. HERBALS\DIAMMONIUM GLYCYRRHIZINATE [Concomitant]
     Active Substance: HERBALS\DIAMMONIUM GLYCYRRHIZINATE
     Dates: start: 20201105, end: 20201118
  84. HERBALS\DIAMMONIUM GLYCYRRHIZINATE [Concomitant]
     Active Substance: HERBALS\DIAMMONIUM GLYCYRRHIZINATE
     Dates: start: 20201126, end: 20201209
  85. HERBALS\DIAMMONIUM GLYCYRRHIZINATE [Concomitant]
     Active Substance: HERBALS\DIAMMONIUM GLYCYRRHIZINATE
     Dates: start: 20210129, end: 20210211
  86. LYRICA [Concomitant]
     Active Substance: PREGABALIN
     Route: 048
     Dates: start: 20210325, end: 20210409
  87. VITAMIN B1 [Concomitant]
     Active Substance: THIAMINE HYDROCHLORIDE
     Indication: Neuritis
     Route: 048
     Dates: start: 20210225
  88. GLYCYRRHIZIN DIAMINE [Concomitant]
     Dates: start: 20210221, end: 20210306
  89. PREGABALIN [Concomitant]
     Active Substance: PREGABALIN
     Dates: start: 20210325, end: 20210409
  90. AFATINIB [Concomitant]
     Active Substance: AFATINIB
  91. PALONOSETRON HYDROCHLORIDE [Concomitant]
     Active Substance: PALONOSETRON HYDROCHLORIDE
     Dates: start: 20200708, end: 20200708
  92. AFATINIB DIMALEATE [Concomitant]
     Active Substance: AFATINIB DIMALEATE
     Dates: start: 20210607, end: 20210720

REACTIONS (1)
  - Guillain-Barre syndrome [Not Recovered/Not Resolved]

NARRATIVE: CASE EVENT DATE: 20200731
